FAERS Safety Report 26190671 (Version 1)
Quarter: 2025Q4

REPORT INFORMATION
  Report Type: Spontaneous
  Country: ID (occurrence: ID)
  Receive Date: 20251223
  Receipt Date: 20251223
  Transmission Date: 20260117
  Serious: Yes (Other)
  Sender: RANBAXY
  Company Number: ID-SUN PHARMACEUTICAL INDUSTRIES INC-2025RR-542689

PATIENT
  Age: 55 Year
  Sex: Male

DRUGS (1)
  1. ERLOTINIB [Suspect]
     Active Substance: ERLOTINIB
     Indication: Non-small cell lung cancer
     Dosage: 150 MILLIGRAM, 20 DAYS
     Route: 065

REACTIONS (2)
  - Dermatitis [Recovering/Resolving]
  - Adverse drug reaction [Unknown]
